FAERS Safety Report 5800918-9 (Version None)
Quarter: 2008Q3

REPORT INFORMATION
  Report Type: 
  Country: None (occurrence: None)
  Receive Date: 20080701
  Receipt Date: 20080626
  Transmission Date: 20090109
  Serious: Yes (Hospitalization, Other)
  Sender: FDA-Public Use
  Company Number: 2008SP008340

PATIENT
  Age: 41 Year
  Sex: Male

DRUGS (5)
  1. PEGETRON     (PEGINTERFERON ALFA-2B W/RIBAVIRIN) [Suspect]
     Indication: HEPATITIS C
     Dosage: 150 MCG; QW;SC
     Route: 058
     Dates: start: 20080130, end: 20080417
  2. PEGETRON (PEGINTERFERON ALFA-2B W/RIBAVIRIN) [Suspect]
     Dosage: 1200 MG; PO
     Route: 048
     Dates: start: 20080130, end: 20080417
  3. SERAX [Concomitant]
  4. ATARAX [Concomitant]
  5. BENADRYL [Concomitant]

REACTIONS (1)
  - APPENDICITIS [None]
